FAERS Safety Report 6259524-7 (Version None)
Quarter: 2009Q3

REPORT INFORMATION
  Report Type: 
  Country: None (occurrence: None)
  Receive Date: 20090708
  Receipt Date: 20090706
  Transmission Date: 20100115
  Serious: Yes (Other)
  Sender: FDA-Public Use
  Company Number: JP-BRISTOL-MYERS SQUIBB COMPANY-14690275

PATIENT
  Age: 71 Year
  Sex: Male

DRUGS (1)
  1. CISPLATIN [Suspect]
     Indication: BONE NEOPLASM MALIGNANT
     Route: 013

REACTIONS (1)
  - FACIAL PALSY [None]
